FAERS Safety Report 15422034 (Version 2)
Quarter: 2018Q4

REPORT INFORMATION
  Report Type: Report from Study
  Country: IT (occurrence: IT)
  Receive Date: 20180924
  Receipt Date: 20181023
  Transmission Date: 20190204
  Serious: Yes (Other)
  Sender: FDA-Public Use
  Company Number: IT-ROCHE-2188336

PATIENT
  Age: 64 Year
  Sex: Female

DRUGS (1)
  1. DIAZEPAM. [Suspect]
     Active Substance: DIAZEPAM
     Indication: ANXIETY
     Dosage: MOST RECENT DOSE OF DIAZEPAM PRIOR TO EVENT: 11/SEP/2018
     Route: 048
     Dates: start: 20180910

REACTIONS (3)
  - Alcohol abuse [Unknown]
  - Drug abuse [Unknown]
  - Poisoning [Recovering/Resolving]

NARRATIVE: CASE EVENT DATE: 20180911
